FAERS Safety Report 6885311-2 (Version None)
Quarter: 2010Q3

REPORT INFORMATION
  Report Type: 
  Country: None (occurrence: None)
  Receive Date: 20100729
  Receipt Date: 20100729
  Transmission Date: 20110219
  Serious: Yes (Disabling)
  Sender: FDA-Public Use
  Company Number: None

PATIENT
  Age: 79 Year
  Sex: Female
  Weight: 46.7205 kg

DRUGS (1)
  1. BYSTOLIC [Suspect]
     Indication: HYPERTENSION

REACTIONS (3)
  - FEELING ABNORMAL [None]
  - HYPERTENSION [None]
  - MEMORY IMPAIRMENT [None]
